FAERS Safety Report 24780076 (Version 3)
Quarter: 2025Q2

REPORT INFORMATION
  Report Type: Spontaneous
  Country: DE (occurrence: DE)
  Receive Date: 20241227
  Receipt Date: 20250407
  Transmission Date: 20250717
  Serious: Yes (Other)
  Sender: ELI LILLY AND CO
  Company Number: DE-ELI_LILLY_AND_COMPANY-DE202412013631

PATIENT
  Age: 64 Year
  Sex: Male

DRUGS (6)
  1. HUMALOG [Suspect]
     Active Substance: INSULIN LISPRO
     Indication: Type 1 diabetes mellitus
     Route: 058
     Dates: start: 202406
  2. HUMALOG [Suspect]
     Active Substance: INSULIN LISPRO
     Indication: Diabetes mellitus
     Route: 058
     Dates: start: 202406
  3. LANTUS [Concomitant]
     Active Substance: INSULIN GLARGINE
     Indication: Product used for unknown indication
  4. TOUJEO [Concomitant]
     Active Substance: INSULIN GLARGINE
     Indication: Product used for unknown indication
  5. ACTRAPID [Concomitant]
     Active Substance: INSULIN HUMAN
     Indication: Product used for unknown indication
  6. METFORMIN [Concomitant]
     Active Substance: METFORMIN HYDROCHLORIDE
     Indication: Product used for unknown indication

REACTIONS (10)
  - Visual impairment [Unknown]
  - Gait inability [Unknown]
  - Speech disorder [Unknown]
  - Malaise [Recovered/Resolved]
  - Dizziness [Unknown]
  - Nausea [Unknown]
  - Feeling drunk [Unknown]
  - Blood pressure increased [Recovered/Resolved]
  - Blood glucose increased [Recovered/Resolved]
  - Drug ineffective [Unknown]
